FAERS Safety Report 16974847 (Version 1)
Quarter: 2019Q4

REPORT INFORMATION
  Report Type: Spontaneous
  Country: US (occurrence: US)
  Receive Date: 20190913
  Receipt Date: 20190913
  Transmission Date: 20200122
  Serious: No
  Sender: FDA-Public Use
  Company Number: None

PATIENT
  Age: 37 Year
  Sex: Female
  Weight: 63.5 kg

DRUGS (1)
  1. LEVOTHYROXINE 100MCG [Suspect]
     Active Substance: LEVOTHYROXINE
     Indication: HYPOTHYROIDISM
     Route: 048
     Dates: start: 20110715, end: 20110715

REACTIONS (3)
  - Fatigue [None]
  - Malaise [None]
  - Somnolence [None]

NARRATIVE: CASE EVENT DATE: 20190715
